FAERS Safety Report 13637980 (Version 1)
Quarter: 2017Q2

REPORT INFORMATION
  Report Type: Report from Study
  Country: BR (occurrence: BR)
  Receive Date: 20170609
  Receipt Date: 20170609
  Transmission Date: 20170830
  Serious: Yes (Other)
  Sender: FDA-Public Use
  Company Number: PHHY2017BR082183

PATIENT
  Sex: Male
  Weight: 74 kg

DRUGS (2)
  1. METFORMIN [Suspect]
     Active Substance: METFORMIN HYDROCHLORIDE
     Indication: DIABETES MELLITUS
     Dosage: 1 DF (850MG), TID (1 AFTER BREAKFAST, 1 AFTER LUNCH AND DINNER)
     Route: 048
  2. GALVUS [Suspect]
     Active Substance: VILDAGLIPTIN
     Indication: DIABETES MELLITUS
     Dosage: 1 DF, UNK (2 YEARS AGO)
     Route: 065

REACTIONS (4)
  - Renal disorder [Recovering/Resolving]
  - Chronic kidney disease [Unknown]
  - Blood creatinine increased [Unknown]
  - Thirst [Not Recovered/Not Resolved]
